FAERS Safety Report 5769804-7 (Version None)
Quarter: 2008Q2

REPORT INFORMATION
  Report Type: 
  Country: None (occurrence: None)
  Receive Date: 20080612
  Receipt Date: 20080407
  Transmission Date: 20081010
  Serious: No
  Sender: FDA-Public Use
  Company Number: US-ABBOTT-08P-163-0446115-00

PATIENT
  Sex: Female
  Weight: 78.542 kg

DRUGS (5)
  1. HUMIRA [Suspect]
     Indication: RHEUMATOID ARTHRITIS
     Dosage: SKIPPED TWO DOSES BECAUSE OF INSURANCE
     Route: 058
     Dates: start: 20050101, end: 20080101
  2. HUMIRA [Suspect]
     Route: 058
     Dates: start: 20080307
  3. NAPROXEN SODIUM [Concomitant]
     Indication: RHEUMATOID ARTHRITIS
     Route: 048
  4. NAPROXEN SODIUM [Concomitant]
     Indication: PAIN
  5. STROVITE [Concomitant]
     Indication: VITAMIN SUPPLEMENTATION
     Route: 048

REACTIONS (2)
  - DRUG DOSE OMISSION [None]
  - RHEUMATOID ARTHRITIS [None]
